FAERS Safety Report 6211844-8 (Version None)
Quarter: 2009Q2

REPORT INFORMATION
  Report Type: 
  Country: None (occurrence: None)
  Receive Date: 20090602
  Receipt Date: 20090522
  Transmission Date: 20091009
  Serious: Yes (Death)
  Sender: FDA-Public Use
  Company Number: KR-PFIZER INC-2009218408

PATIENT
  Age: 61 Year

DRUGS (5)
  1. CAMPTOSAR [Suspect]
     Indication: COLORECTAL CANCER METASTATIC
     Dosage: 207 MG/2 WEEKS
     Route: 042
     Dates: start: 20090317
  2. FLUOROURACIL [Suspect]
     Indication: COLORECTAL CANCER METASTATIC
     Dosage: 2528 MG/2 WEEKS
     Route: 042
     Dates: start: 20090317
  3. CALCIUM LEVOFOLINATE [Suspect]
     Indication: COLORECTAL CANCER METASTATIC
     Dosage: 316 MG/2 WEEKS
     Route: 042
     Dates: start: 20090317
  4. CAPECITABINE [Concomitant]
  5. OXALIPLATIN [Concomitant]
     Dosage: UNK
     Dates: start: 20090206

REACTIONS (1)
  - DEATH [None]
